FAERS Safety Report 5112740-X (Version None)
Quarter: 2006Q3

REPORT INFORMATION
  Report Type: 
  Country: None (occurrence: None)
  Receive Date: 20060919
  Receipt Date: 20060824
  Transmission Date: 20061208
  Serious: Yes (Hospitalization)
  Sender: FDA-Public Use
  Company Number: 147446ISR

PATIENT
  Sex: Female

DRUGS (3)
  1. ENALAPRIL MALEATE [Suspect]
     Dosage: (1) ORAL
     Route: 048
     Dates: end: 20050820
  2. FELODIPINE [Suspect]
     Dosage: (1) ORAL
     Route: 048
     Dates: end: 20050820
  3. FELODIPINE [Suspect]
     Dosage: (1) ORAL
     Route: 048
     Dates: end: 20050820

REACTIONS (1)
  - FALL [None]
